FAERS Safety Report 6457813-4 (Version None)
Quarter: 2009Q4

REPORT INFORMATION
  Report Type: 
  Country: None (occurrence: None)
  Receive Date: 20091120
  Receipt Date: 20091110
  Transmission Date: 20100525
  Serious: Yes (Hospitalization)
  Sender: FDA-Public Use
  Company Number: 2009017029

PATIENT
  Age: 74 Year
  Sex: Male

DRUGS (2)
  1. ACTIQ [Suspect]
     Indication: CEREBROVASCULAR ACCIDENT
     Dosage: 200 MCG, BU
     Route: 002
     Dates: start: 20091010, end: 20091010
  2. ACTIQ [Suspect]
     Indication: PAIN
     Dosage: 200 MCG, BU
     Route: 002
     Dates: start: 20091010, end: 20091010

REACTIONS (8)
  - BLOOD PRESSURE INCREASED [None]
  - CONFUSIONAL STATE [None]
  - FEELING COLD [None]
  - PALLOR [None]
  - RESPIRATORY DISORDER [None]
  - SOMNOLENCE [None]
  - VOMITING [None]
  - WRONG TECHNIQUE IN DRUG USAGE PROCESS [None]
